FAERS Safety Report 20942511 (Version 4)
Quarter: 2022Q3

REPORT INFORMATION
  Report Type: Spontaneous
  Country: NL (occurrence: NL)
  Receive Date: 20220610
  Receipt Date: 20220818
  Transmission Date: 20221027
  Serious: Yes (Other)
  Sender: FDA-Public Use
  Company Number: NL-BRISTOL-MYERS SQUIBB COMPANY-2022-049949

PATIENT
  Age: 49 Year
  Sex: Female
  Weight: 66 kg

DRUGS (1)
  1. OPDIVO [Suspect]
     Active Substance: NIVOLUMAB
     Indication: Malignant melanoma
     Dosage: DOSE : UNAV;     FREQ : UNAV
     Route: 065
     Dates: start: 20211125, end: 20211227

REACTIONS (5)
  - Deafness neurosensory [Recovering/Resolving]
  - Deafness bilateral [Recovered/Resolved]
  - Hepatitis [Unknown]
  - Autoimmune inner ear disease [Unknown]
  - Skin disorder [Unknown]

NARRATIVE: CASE EVENT DATE: 20211220
